FAERS Safety Report 9271214 (Version 1)
Quarter: 2013Q2

REPORT INFORMATION
  Report Type: Spontaneous
  Country: US (occurrence: US)
  Receive Date: 20130506
  Receipt Date: 20130506
  Transmission Date: 20140414
  Serious: Yes (Other)
  Sender: FDA-Public Use
  Company Number: US-ROCHE-1220199

PATIENT
  Sex: Female

DRUGS (3)
  1. HERCEPTIN [Suspect]
     Indication: BREAST CANCER
     Route: 065
  2. TYKERB [Suspect]
     Indication: BREAST CANCER
     Route: 048
  3. XELODA [Concomitant]
     Route: 065

REACTIONS (7)
  - Metastases to central nervous system [Unknown]
  - Confusional state [Unknown]
  - Sleep disorder [Unknown]
  - Full blood count decreased [Unknown]
  - Diarrhoea [Unknown]
  - Fatigue [Unknown]
  - Heart rate increased [Unknown]
